FAERS Safety Report 8891626 (Version 1)
Quarter: 2012Q4

REPORT INFORMATION
  Report Type: 
  Country: US (occurrence: US)
  Receive Date: 20121107
  Receipt Date: 20121107
  Transmission Date: 20130627
  Serious: No
  Sender: FDA-Public Use
  Company Number: US-AMGEN-USASP2011056340

PATIENT
  Age: 57 Year
  Sex: Female
  Weight: 68.93 kg

DRUGS (12)
  1. ENBREL [Suspect]
     Indication: PRODUCT USED FOR UNKNOWN INDICATION
     Dosage: 50 mg, qwk
     Route: 058
  2. CELEBREX [Concomitant]
  3. METHOTREXATE [Concomitant]
  4. FOLIC ACID [Concomitant]
  5. VITAMIN B [Concomitant]
  6. SULFASALAZIN [Concomitant]
  7. FISH OIL NATURE MADE [Concomitant]
  8. CALCIUM [Concomitant]
  9. VITAMIN B12                        /00056201/ [Concomitant]
  10. MULTIVITAMIN                       /00097801/ [Concomitant]
  11. B COMPLETE                         /01734501/ [Concomitant]
  12. EVAMIST [Concomitant]

REACTIONS (1)
  - Joint swelling [Unknown]
